FAERS Safety Report 12727740 (Version 3)
Quarter: 2016Q4

REPORT INFORMATION
  Report Type: Spontaneous
  Country: US (occurrence: US)
  Receive Date: 20160909
  Receipt Date: 20161116
  Transmission Date: 20170207
  Serious: No
  Sender: FDA-Public Use
  Company Number: ALCN2016US006226

PATIENT
  Sex: Female

DRUGS (2)
  1. SYSTANE PF [Suspect]
     Active Substance: POLYETHYLENE GLYCOL 400\PROPYLENE GLYCOL
     Indication: EYE LUBRICATION THERAPY
     Dosage: 1 GTT, QHS
     Route: 047
     Dates: start: 2014
  2. SYSTANE NIGHTTIME [Concomitant]
     Active Substance: MINERAL OIL\PETROLATUM
     Indication: EYE LUBRICATION THERAPY
     Dosage: 1 DF, PRN
     Route: 047

REACTIONS (1)
  - Superficial injury of eye [Recovering/Resolving]

NARRATIVE: CASE EVENT DATE: 20160907
